FAERS Safety Report 24293779 (Version 1)
Quarter: 2024Q3

REPORT INFORMATION
  Report Type: Spontaneous
  Country: US (occurrence: None)
  Receive Date: 20240906
  Receipt Date: 20240906
  Transmission Date: 20241016
  Serious: No
  Sender: DOMPE FARMACEUTICI
  Company Number: US-FARMAPROD-202402-0643

PATIENT
  Age: 73 Year
  Sex: Female

DRUGS (10)
  1. OXERVATE [Suspect]
     Active Substance: CENEGERMIN-BKBJ
     Indication: Neurotrophic keratopathy
     Route: 047
     Dates: start: 20240224
  2. OXERVATE [Suspect]
     Active Substance: CENEGERMIN-BKBJ
  3. PROLIA [Concomitant]
     Active Substance: DENOSUMAB
  4. VITAMIN C [Concomitant]
     Active Substance: ASCORBIC ACID
  5. CALCIUM\CHOLECALCIFEROL [Concomitant]
     Active Substance: CALCIUM\CHOLECALCIFEROL
     Dosage: 600MG-12.5
  6. VITAMIN E [Concomitant]
     Active Substance: .ALPHA.-TOCOPHEROL
  7. REFRESH TEARS [Concomitant]
     Active Substance: CARBOXYMETHYLCELLULOSE SODIUM
  8. RESTASIS [Concomitant]
     Active Substance: CYCLOSPORINE
  9. MOXIFLOXACIN [Concomitant]
     Active Substance: MOXIFLOXACIN
  10. ERYTHROMYCIN [Concomitant]
     Active Substance: ERYTHROMYCIN

REACTIONS (7)
  - Eye pain [Unknown]
  - Dizziness [Unknown]
  - Dizziness [Unknown]
  - Photophobia [Unknown]
  - Fatigue [Unknown]
  - Visual acuity reduced [Unknown]
  - Eye discharge [Unknown]

NARRATIVE: CASE EVENT DATE: 20240415
